FAERS Safety Report 12980068 (Version 1)
Quarter: 2016Q4

REPORT INFORMATION
  Report Type: Report from Study
  Country: None (occurrence: US)
  Receive Date: 20161128
  Receipt Date: 20161128
  Transmission Date: 20170207
  Serious: Yes (Other)
  Sender: FDA-Public Use
  Company Number: US-ABBVIE-16K-163-1745954-00

PATIENT
  Age: 31 Year
  Sex: Female
  Weight: 129.84 kg

DRUGS (1)
  1. HUMIRA [Suspect]
     Active Substance: ADALIMUMAB
     Indication: HIDRADENITIS
     Route: 058
     Dates: start: 2015, end: 20160819

REACTIONS (3)
  - Hidradenitis [Recovering/Resolving]
  - Rheumatoid arthritis [Not Recovered/Not Resolved]
  - Skin lesion [Recovered/Resolved]

NARRATIVE: CASE EVENT DATE: 2016
